FAERS Safety Report 6227675-9 (Version None)
Quarter: 2009Q2

REPORT INFORMATION
  Report Type: 
  Country: None (occurrence: None)
  Receive Date: 20090612
  Receipt Date: 20090603
  Transmission Date: 20091009
  Serious: Yes (Hospitalization, Other)
  Sender: FDA-Public Use
  Company Number: PHMT2006CA00550

PATIENT
  Sex: Male

DRUGS (8)
  1. SANDOSTATIN LAR [Suspect]
     Indication: CARCINOID TUMOUR
     Dosage: 30 MG, EVERY 4 WEEKS
     Route: 030
     Dates: start: 20050831
  2. SANDOSTATIN LAR [Suspect]
     Dosage: 30 MG, UNK
     Route: 030
  3. ADALAT CC [Concomitant]
  4. ALLOPURINOL [Concomitant]
  5. ALTACE [Concomitant]
  6. HYDROCHLOROTHIAZIDE [Concomitant]
  7. LOPERAMIDE HYDROCHLORIDE [Concomitant]
  8. LOSEC [Concomitant]

REACTIONS (5)
  - DECREASED APPETITE [None]
  - HEPATIC NEOPLASM [None]
  - INCISION SITE COMPLICATION [None]
  - INCISIONAL HERNIA REPAIR [None]
  - LIVER OPERATION [None]
